FAERS Safety Report 4538264-6 (Version None)
Quarter: 2004Q4

REPORT INFORMATION
  Report Type: 
  Country: None (occurrence: None)
  Receive Date: 20041221
  Receipt Date: 20041203
  Transmission Date: 20050328
  Serious: Yes (Death, Hospitalization)
  Sender: FDA-Public Use
  Company Number: 2004-DE-06286ZA

PATIENT
  Age: 34 Year
  Sex: Female

DRUGS (4)
  1. VIRAMUNE [Suspect]
     Indication: HIV INFECTION
     Dosage: 400 MG (200 MG), PO
     Route: 048
     Dates: start: 20040906
  2. VIRAMUNE [Suspect]
     Indication: HIV INFECTION
     Dosage: 400 MG (200 MG), PO
     Route: 048
     Dates: start: 20040908
  3. LAMIVUDINE (LAMIVUDINE) [Suspect]
     Indication: HIV INFECTION
     Dosage: 300 MG (150 MG), PO
     Route: 048
     Dates: start: 20040906
  4. STAVUDINE (STAVUDINE) (TA) [Suspect]
     Indication: HIV INFECTION
     Dosage: 60 MG (30 MG), PO
     Route: 048
     Dates: start: 20040906

REACTIONS (2)
  - ENCEPHALITIS [None]
  - HEPATOTOXICITY [None]
